FAERS Safety Report 9227560 (Version 1)
Quarter: 2013Q2

REPORT INFORMATION
  Report Type: Spontaneous
  Country: BR (occurrence: BR)
  Receive Date: 20130412
  Receipt Date: 20130412
  Transmission Date: 20140414
  Serious: Yes (Death, Other)
  Sender: FDA-Public Use
  Company Number: PHHY2013BR035242

PATIENT
  Sex: Female

DRUGS (1)
  1. EXJADE [Suspect]
     Dosage: UNK UKN, UNK

REACTIONS (6)
  - Lymphoplasmacytoid lymphoma/immunocytoma [Fatal]
  - Toxicity to various agents [Fatal]
  - Myalgia [Unknown]
  - Haemochromatosis [Unknown]
  - Waldenstrom^s macroglobulinaemia [Unknown]
  - Serum ferritin decreased [Unknown]
